FAERS Safety Report 12552747 (Version 2)
Quarter: 2016Q3

REPORT INFORMATION
  Report Type: Report from Study
  Country: US (occurrence: US)
  Receive Date: 20160713
  Receipt Date: 20160718
  Transmission Date: 20161109
  Serious: No
  Sender: FDA-Public Use
  Company Number: US-AMGEN-USASL2016089069

PATIENT
  Age: 47 Year
  Sex: Female

DRUGS (1)
  1. ENBREL [Suspect]
     Active Substance: ETANERCEPT
     Indication: RHEUMATOID ARTHRITIS
     Dosage: UNK UNK, QWK
     Route: 065
     Dates: start: 20160107

REACTIONS (7)
  - Drug dose omission [Unknown]
  - Bronchitis [Unknown]
  - Underdose [Unknown]
  - Wrong technique in product usage process [Unknown]
  - Administration site bruise [Unknown]
  - Injection site pain [Unknown]
  - Injection site erosion [Unknown]

NARRATIVE: CASE EVENT DATE: 2016
